FAERS Safety Report 14492478 (Version 2)
Quarter: 2018Q3

REPORT INFORMATION
  Report Type: Spontaneous
  Country: JP (occurrence: JP)
  Receive Date: 20180206
  Receipt Date: 20180807
  Transmission Date: 20181010
  Serious: Yes (Other)
  Sender: FDA-Public Use
  Company Number: JP-BIOCRYST PHARMACEUTICALS, INC.-2018BCR00019

PATIENT
  Age: 79 Year
  Sex: Male

DRUGS (2)
  1. RAPIACTA [Suspect]
     Active Substance: PERAMIVIR
     Indication: PNEUMONIA INFLUENZAL
     Dosage: 300 MG, UNK
     Route: 042
     Dates: start: 20180119, end: 20180119
  2. ZOSYN [Concomitant]
     Active Substance: PIPERACILLIN SODIUM\TAZOBACTAM SODIUM
     Indication: PNEUMONIA INFLUENZAL
     Dosage: UNK
     Route: 042
     Dates: start: 20180119, end: 20180122

REACTIONS (2)
  - Hepatic function abnormal [Not Recovered/Not Resolved]
  - Blood creatinine increased [Not Recovered/Not Resolved]

NARRATIVE: CASE EVENT DATE: 20180122
